FAERS Safety Report 10597176 (Version 1)
Quarter: 2014Q4

REPORT INFORMATION
  Report Type: Spontaneous
  Country: DE (occurrence: DE)
  Receive Date: 20141121
  Receipt Date: 20141121
  Transmission Date: 20150529
  Serious: Yes (Other)
  Sender: FDA-Public Use
  Company Number: DE-ROCHE-1493384

PATIENT
  Sex: Male

DRUGS (3)
  1. VINCRISTIN [Concomitant]
     Active Substance: VINCRISTINE
     Indication: LYMPHOMA
  2. CYCLOPHOSPHAMIDE. [Concomitant]
     Active Substance: CYCLOPHOSPHAMIDE
     Indication: LYMPHOMA
     Route: 042
  3. MABTHERA [Suspect]
     Active Substance: RITUXIMAB
     Indication: LYMPHOMA
     Route: 042

REACTIONS (2)
  - Hypersensitivity [Unknown]
  - Febrile convulsion [Unknown]
